FAERS Safety Report 15927000 (Version 2)
Quarter: 2019Q1

REPORT INFORMATION
  Report Type: Spontaneous
  Country: US (occurrence: US)
  Receive Date: 20190205
  Receipt Date: 20190219
  Transmission Date: 20190417
  Serious: No
  Sender: FDA-Public Use
  Company Number: US-ALLERGAN-1851561US

PATIENT
  Sex: Female

DRUGS (2)
  1. CYSTISIS MEDICATION (UNSPECIFIED) [Concomitant]
     Indication: CYSTITIS INTERSTITIAL
     Dosage: UNK
     Route: 048
  2. BOTOX [Suspect]
     Active Substance: ONABOTULINUMTOXINA
     Indication: MIGRAINE
     Dosage: UNK, SINGLE
     Route: 030
     Dates: start: 20180917, end: 20180917

REACTIONS (2)
  - Micturition urgency [Recovering/Resolving]
  - Pollakiuria [Recovering/Resolving]

NARRATIVE: CASE EVENT DATE: 20180920
